FAERS Safety Report 6585594-2 (Version None)
Quarter: 2010Q1

REPORT INFORMATION
  Report Type: 
  Country: None (occurrence: None)
  Receive Date: 20100217
  Receipt Date: 20100208
  Transmission Date: 20100710
  Serious: Yes (Hospitalization)
  Sender: FDA-Public Use
  Company Number: US-ELI_LILLY_AND_COMPANY-US200901001583

PATIENT
  Sex: Female
  Weight: 84.807 kg

DRUGS (18)
  1. BYETTA [Suspect]
     Indication: TYPE 2 DIABETES MELLITUS
     Dosage: 5 UG, 2/D
     Route: 058
     Dates: start: 20070501, end: 20070626
  2. BYETTA [Suspect]
     Dosage: 10 UG, 2/D
     Route: 058
     Dates: start: 20070627, end: 20081218
  3. BYETTA [Suspect]
     Dates: start: 20071201, end: 20081201
  4. SPIRONOLACTONE [Concomitant]
     Indication: HYPERTENSION
     Dosage: 25 MG, DAILY (1/D)
     Route: 048
     Dates: start: 20061012
  5. METFORMIN HCL [Concomitant]
     Indication: TYPE 2 DIABETES MELLITUS
     Dosage: 1000 MG, 2/D
     Route: 048
     Dates: start: 20061211
  6. LANTUS [Concomitant]
     Indication: TYPE 2 DIABETES MELLITUS
     Dates: end: 20070501
  7. LANTUS [Concomitant]
     Dates: start: 20081201
  8. LEVOXYL [Concomitant]
     Indication: HYPOTHYROIDISM
     Dosage: 370 UG, DAILY (1/D)
     Route: 048
     Dates: start: 20080610
  9. POTASSIUM CHLORIDE [Concomitant]
     Dosage: 20 MEQ, 2/D
     Route: 048
  10. TRIAMTERENE AND HYDROCHLOROTHIAZIDE [Concomitant]
     Indication: HYPERTENSION
     Dosage: UNK, DAILY (1/D)
     Route: 048
     Dates: start: 20050823
  11. CLONIDINE [Concomitant]
     Indication: HYPERTENSION
     Dosage: 0.1 MG, DAILY (1/D)
     Route: 048
  12. GEMFIBROZIL [Concomitant]
     Indication: HYPERTRIGLYCERIDAEMIA
     Dosage: 600 MG, 2/D
     Route: 048
     Dates: start: 20061201
  13. LISINOPRIL [Concomitant]
     Indication: HYPERTENSION
     Dosage: 10 MG, DAILY (1/D)
     Route: 048
     Dates: start: 20090205
  14. ATENOLOL [Concomitant]
     Indication: HYPERTENSION
     Dosage: 25 MG, DAILY (1/D)
     Route: 048
     Dates: start: 20090121
  15. PLAVIX [Concomitant]
     Indication: CARDIOVASCULAR EVENT PROPHYLAXIS
     Dosage: 75 MG, DAILY (1/D)
     Route: 048
     Dates: start: 20080226
  16. ASPIRIN [Concomitant]
     Indication: THROMBOSIS PROPHYLAXIS
     Dosage: 81 MG, DAILY (1/D)
     Route: 048
  17. FISH OIL [Concomitant]
     Indication: PROPHYLAXIS
     Dosage: 1000 MG, DAILY (1/D)
     Route: 048
  18. SELENIUM [Concomitant]
     Indication: PROPHYLAXIS
     Dosage: 200 MG, DAILY (1/D)
     Route: 048

REACTIONS (3)
  - CELLULITIS [None]
  - PANCREATITIS [None]
  - WEIGHT DECREASED [None]
